FAERS Safety Report 5100162-7 (Version None)
Quarter: 2006Q3

REPORT INFORMATION
  Report Type: 
  Country: None (occurrence: None)
  Receive Date: 20060908
  Receipt Date: 20060614
  Transmission Date: 20061208
  Serious: Yes (Life-Threatening, Hospitalization, Other)
  Sender: FDA-Public Use
  Company Number: JP-ABBOTT-06P-087-0335954-00

PATIENT
  Sex: Female

DRUGS (5)
  1. LIPIDIL [Suspect]
     Indication: HYPERLIPIDAEMIA
     Route: 048
     Dates: start: 20060315, end: 20060525
  2. EFONIDIPINE HYDROCHLORIDE [Concomitant]
     Indication: DRUG USE FOR UNKNOWN INDICATION
     Dates: start: 20060315, end: 20060525
  3. DIFENIDOL [Concomitant]
     Indication: DRUG USE FOR UNKNOWN INDICATION
  4. EFONIDIPINE [Concomitant]
     Indication: DRUG USE FOR UNKNOWN INDICATION
  5. NIZATIDINE [Concomitant]
     Indication: DRUG USE FOR UNKNOWN INDICATION
     Dates: start: 20060315, end: 20060525

REACTIONS (6)
  - DUODENAL ULCER HAEMORRHAGE [None]
  - JAUNDICE [None]
  - LIVER DISORDER [None]
  - RETCHING [None]
  - SHOCK [None]
  - VERTIGO [None]
